FAERS Safety Report 6303466-5 (Version None)
Quarter: 2009Q3

REPORT INFORMATION
  Report Type: 
  Country: None (occurrence: None)
  Receive Date: 20090810
  Receipt Date: 20090729
  Transmission Date: 20100115
  Serious: Yes (Other)
  Sender: FDA-Public Use
  Company Number: PHHY2009AU29104

PATIENT
  Sex: Female

DRUGS (3)
  1. CLOZARIL [Suspect]
     Dosage: 12.5 MG DAILY
     Dates: start: 20090701
  2. CLOZARIL [Suspect]
     Dosage: 100 MG DAILY
     Dates: start: 20090708
  3. CLOZARIL [Suspect]
     Dosage: 125 MG DAILY
     Dates: start: 20090715, end: 20090715

REACTIONS (7)
  - BRADYCARDIA [None]
  - HYPOTENSION [None]
  - NEUTROPHIL COUNT INCREASED [None]
  - PRESYNCOPE [None]
  - SINUS ARRHYTHMIA [None]
  - SYNCOPE [None]
  - WHITE BLOOD CELL COUNT INCREASED [None]
